FAERS Safety Report 26147910 (Version 1)
Quarter: 2025Q4

REPORT INFORMATION
  Report Type: Spontaneous
  Country: CA (occurrence: CA)
  Receive Date: 20251212
  Receipt Date: 20251212
  Transmission Date: 20260118
  Serious: Yes (Other)
  Sender: AUROBINDO
  Company Number: CA-APLCMS-2025EM380444

PATIENT

DRUGS (1)
  1. MIRTAZAPINE [Suspect]
     Active Substance: MIRTAZAPINE
     Indication: Cyclothymic disorder
     Dosage: UNK

REACTIONS (2)
  - Psychotic disorder [Unknown]
  - Rapid eye movement sleep behaviour disorder [Unknown]

NARRATIVE: CASE EVENT DATE: 20250101
